FAERS Safety Report 17589772 (Version 2)
Quarter: 2021Q2

REPORT INFORMATION
  Report Type: Spontaneous
  Country: US (occurrence: US)
  Receive Date: 20200327
  Receipt Date: 20210413
  Transmission Date: 20210716
  Serious: No
  Sender: FDA-Public Use
  Company Number: US-ALLERGAN-1947221US

PATIENT
  Age: 88 Year
  Sex: Female

DRUGS (3)
  1. THRYOID MEDICATION [Concomitant]
     Indication: HYPOTHYROIDISM
     Dosage: UNK UNK, QD
  2. LUMIGAN [Suspect]
     Active Substance: BIMATOPROST
     Indication: PRODUCT USED FOR UNKNOWN INDICATION
     Dosage: 2 GTT, QPM
     Route: 047
  3. COMBIGAN [Concomitant]
     Active Substance: BRIMONIDINE TARTRATE\TIMOLOL MALEATE
     Indication: PRODUCT USED FOR UNKNOWN INDICATION
     Dosage: UNK UNK, BID
     Route: 047
     Dates: start: 2018

REACTIONS (2)
  - Product container issue [Unknown]
  - Accidental exposure to product [Unknown]
